FAERS Safety Report 17392606 (Version 3)
Quarter: 2020Q4

REPORT INFORMATION
  Report Type: Spontaneous
  Country: US (occurrence: US)
  Receive Date: 20200207
  Receipt Date: 20201109
  Transmission Date: 20210113
  Serious: Yes (Other)
  Sender: FDA-Public Use
  Company Number: US-JNJFOC-20200150980

PATIENT
  Age: 70 Year
  Sex: Male

DRUGS (3)
  1. LUPRON [Concomitant]
     Active Substance: LEUPROLIDE ACETATE
     Indication: PROSTATE CANCER
     Route: 065
  2. DONPEZIL [Concomitant]
     Active Substance: DONEPEZIL
     Indication: DEMENTIA
     Route: 065
     Dates: start: 201805
  3. ZYTIGA [Suspect]
     Active Substance: ABIRATERONE ACETATE
     Indication: PRODUCT USED FOR UNKNOWN INDICATION
     Route: 048

REACTIONS (2)
  - Drug ineffective [Unknown]
  - Hepatic enzyme increased [Recovered/Resolved]
